FAERS Safety Report 10190412 (Version 1)
Quarter: 2014Q2

REPORT INFORMATION
  Report Type: Report from Study
  Country: US (occurrence: US)
  Receive Date: 20140522
  Receipt Date: 20140522
  Transmission Date: 20141212
  Serious: Yes (Hospitalization)
  Sender: FDA-Public Use
  Company Number: US-TEVA-482966USA

PATIENT
  Age: 84 Year
  Sex: Female

DRUGS (2)
  1. GEMCITABINE [Suspect]
     Indication: ADENOCARCINOMA PANCREAS
     Dosage: OVER 30 MIN QWEEK FOR WEEKS 1-3
     Route: 042
     Dates: start: 20131125
  2. TARCEVA [Suspect]
     Dosage: 100 MILLIGRAM DAILY;
     Route: 048
     Dates: start: 20131125

REACTIONS (4)
  - Hypoxia [Not Recovered/Not Resolved]
  - Urinary tract infection [Not Recovered/Not Resolved]
  - Heart rate increased [None]
  - Tachycardia [None]
